FAERS Safety Report 23916916 (Version 2)
Quarter: 2024Q2

REPORT INFORMATION
  Report Type: Spontaneous
  Country: CA (occurrence: CA)
  Receive Date: 20240529
  Receipt Date: 20240620
  Transmission Date: 20240716
  Serious: Yes (Other)
  Sender: FDA-Public Use
  Company Number: CA-SANDOZ-SDZ2024CA052397

PATIENT
  Sex: Female

DRUGS (1)
  1. HYRIMOZ [Suspect]
     Active Substance: ADALIMUMAB-ADAZ
     Indication: Crohn^s disease
     Dosage: 40MG Q 2 WEEKS;EVERY TWO WEEKS PREFILLED PEN
     Route: 058
     Dates: start: 20220204

REACTIONS (2)
  - Crohn^s disease [Recovering/Resolving]
  - Rash [Unknown]
